FAERS Safety Report 9892506 (Version 1)
Quarter: 2014Q1

REPORT INFORMATION
  Report Type: Spontaneous
  Country: AU (occurrence: AU)
  Receive Date: 20140212
  Receipt Date: 20140212
  Transmission Date: 20141002
  Serious: Yes (Disabling)
  Sender: FDA-Public Use
  Company Number: AU-BAXTER-2014BAX006817

PATIENT
  Age: 48 Year
  Sex: Female

DRUGS (2)
  1. KIOVIG NORMAL IMMUNOGLOBULIN (HUMAN) 20G/200ML FOR INTRAVENOUS USE INJ [Suspect]
     Indication: CHRONIC INFLAMMATORY DEMYELINATING POLYRADICULONEUROPATHY
     Route: 065
  2. KIOVIG NORMAL IMMUNOGLOBULIN (HUMAN) 20G/200ML FOR INTRAVENOUS USE INJ [Suspect]
     Indication: OFF LABEL USE

REACTIONS (3)
  - Headache [Recovered/Resolved]
  - Nausea [Recovered/Resolved]
  - Influenza like illness [Recovered/Resolved]
